FAERS Safety Report 8902386 (Version 3)
Quarter: 2013Q1

REPORT INFORMATION
  Report Type: Spontaneous
  Country: US (occurrence: US)
  Receive Date: 20121112
  Receipt Date: 20130314
  Transmission Date: 20140127
  Serious: Yes (Hospitalization)
  Sender: FDA-Public Use
  Company Number: US-009507513-1211USA004644

PATIENT
  Sex: 0

DRUGS (3)
  1. PEGINTRON [Suspect]
     Dosage: UNK
  2. VICTRELIS [Suspect]
  3. RIBASPHERE [Suspect]

REACTIONS (4)
  - Red blood cell count decreased [Unknown]
  - White blood cell count decreased [Unknown]
  - Haemoglobin decreased [Unknown]
  - Full blood count decreased [Unknown]
